FAERS Safety Report 25311847 (Version 1)
Quarter: 2025Q2

REPORT INFORMATION
  Report Type: Spontaneous
  Country: HK (occurrence: HK)
  Receive Date: 20250514
  Receipt Date: 20250514
  Transmission Date: 20250717
  Serious: Yes (Life-Threatening, Hospitalization)
  Sender: ACCORD
  Company Number: HK-MLMSERVICE-20250428-PI489809-00232-1

PATIENT
  Age: 64 Year
  Sex: Female

DRUGS (5)
  1. MYCOPHENOLATE MOFETIL [Suspect]
     Active Substance: MYCOPHENOLATE MOFETIL
     Indication: Immunosuppressant drug therapy
  2. TACROLIMUS [Suspect]
     Active Substance: TACROLIMUS
     Indication: Immunosuppressant drug therapy
     Dosage: 0.05 MG/KG/DAY
  3. PREDNISOLONE [Suspect]
     Active Substance: PREDNISOLONE
     Indication: Immunosuppressant drug therapy
  4. MYCOPHENOLATE MOFETIL [Suspect]
     Active Substance: MYCOPHENOLATE MOFETIL
     Indication: Immunosuppressant drug therapy
     Dosage: DOSE REDUCED
  5. TACROLIMUS [Suspect]
     Active Substance: TACROLIMUS
     Indication: Immunosuppressant drug therapy
     Dosage: 0.03 MG/ KG/DAY, REDUCED, FURTHER REDUCED

REACTIONS (4)
  - Cryptococcal cutaneous infection [Recovered/Resolved]
  - Cytomegalovirus infection [Recovered/Resolved]
  - Polyomavirus-associated nephropathy [Not Recovered/Not Resolved]
  - Cryptococcal meningoencephalitis [Recovered/Resolved]
